FAERS Safety Report 5271141-4 (Version None)
Quarter: 2007Q1

REPORT INFORMATION
  Report Type: 
  Country: None (occurrence: None)
  Receive Date: 20070321
  Receipt Date: 20070309
  Transmission Date: 20070707
  Serious: Yes (Other)
  Sender: FDA-Public Use
  Company Number: DE-ROCHE-449857

PATIENT
  Age: 46 Year
  Sex: Male
  Weight: 80.7 kg

DRUGS (10)
  1. PEGASYS [Suspect]
     Dosage: FORM REPORTED AS PRE-FILLED SYRINGE.
     Route: 058
     Dates: start: 20041026, end: 20050926
  2. COPEGUS [Suspect]
     Route: 048
     Dates: start: 20041026, end: 20050926
  3. TENOFOVIR DISOPROXIL FUMARATE [Suspect]
     Indication: SYSTEMIC ANTIVIRAL TREATMENT
     Route: 065
     Dates: start: 20030617
  4. LAMIVUDINE [Suspect]
     Indication: IMMUNODEFICIENCY
     Route: 065
     Dates: start: 19970411, end: 20051024
  5. IDV [Suspect]
     Indication: IMMUNODEFICIENCY
     Route: 065
     Dates: start: 19970411, end: 19990824
  6. AZT [Suspect]
     Indication: IMMUNODEFICIENCY
     Route: 065
     Dates: start: 19970411, end: 20051024
  7. ABACAVIR [Concomitant]
     Indication: IMMUNODEFICIENCY
     Dosage: DRUG WAS REPORTED AS ABACAVIR (ABC).
     Dates: start: 19990715, end: 20051024
  8. EFAVIRENZ [Concomitant]
     Indication: IMMUNODEFICIENCY
     Dosage: DRUG REPORTED AS ENFAVIRENZ (EFV). DOSAGE REGIMEN REPORTED AS 200 MG 1 X 3 CAPS DAILY FROM 24 AUGUS+
     Dates: start: 19990824
  9. TENOFOVIR DISOPROXIL FUMARATE [Concomitant]
     Indication: IMMUNODEFICIENCY
     Dosage: DRUG REPORTED AS TENOFOVIR/DISOPROXIL/FUMARATE (TDF).
     Dates: start: 20030617
  10. EMTRICITABINE [Concomitant]
     Indication: IMMUNODEFICIENCY
     Dosage: DRUG REPORTED AS FLUORTHIACYTIDIN (FTC).
     Dates: start: 20051024

REACTIONS (6)
  - LIPODYSTROPHY ACQUIRED [None]
  - LIPOHYPERTROPHY [None]
  - NECK PAIN [None]
  - NO THERAPEUTIC RESPONSE [None]
  - RASH [None]
  - UPPER RESPIRATORY TRACT INFECTION [None]
